FAERS Safety Report 14823164 (Version 10)
Quarter: 2019Q3

REPORT INFORMATION
  Report Type: Report from Study
  Country: US (occurrence: US)
  Receive Date: 20180427
  Receipt Date: 20190802
  Transmission Date: 20191004
  Serious: Yes (Hospitalization)
  Sender: FDA-Public Use
  Company Number: US-ACTELION-A-NJ2018-171174

PATIENT
  Age: 74 Year
  Sex: Male
  Weight: 99.77 kg

DRUGS (7)
  1. OPSUMIT [Suspect]
     Active Substance: MACITENTAN
     Indication: PULMONARY ARTERIAL HYPERTENSION
     Dosage: 10 MG, QD
     Route: 048
     Dates: start: 20171009
  2. UPTRAVI [Suspect]
     Active Substance: SELEXIPAG
     Indication: PULMONARY ARTERIAL HYPERTENSION
     Dosage: 1200 MCG, BID
     Route: 048
     Dates: start: 20190705, end: 20190714
  3. ADCIRCA [Concomitant]
     Active Substance: TADALAFIL
  4. UPTRAVI [Suspect]
     Active Substance: SELEXIPAG
     Dosage: 200 MCG, BID
     Route: 048
  5. SILDENAFIL. [Concomitant]
     Active Substance: SILDENAFIL
  6. ELIQUIS [Concomitant]
     Active Substance: APIXABAN
     Route: 065
  7. UPTRAVI [Suspect]
     Active Substance: SELEXIPAG
     Dosage: 1400 MCG, BID
     Route: 048
     Dates: start: 20190715

REACTIONS (10)
  - Pulmonary arterial pressure increased [Not Recovered/Not Resolved]
  - Confusional state [Unknown]
  - Dehydration [Unknown]
  - Somnolence [Unknown]
  - Arrhythmia [Recovering/Resolving]
  - Complication associated with device [Unknown]
  - Cardiac pacemaker insertion [Recovering/Resolving]
  - Syncope [Unknown]
  - Flushing [Unknown]
  - Headache [Unknown]

NARRATIVE: CASE EVENT DATE: 20180412
